FAERS Safety Report 13062975 (Version 1)
Quarter: 2016Q4

REPORT INFORMATION
  Report Type: Other
  Country: IT (occurrence: IT)
  Receive Date: 20161227
  Receipt Date: 20161227
  Transmission Date: 20170207
  Serious: Yes (Hospitalization)
  Sender: FDA-Public Use
  Company Number: IT-AJANTA PHARMA USA INC.-1061281

PATIENT
  Age: 7 Year
  Sex: Female

DRUGS (4)
  1. RISPERIDONE. [Suspect]
     Active Substance: RISPERIDONE
     Indication: AGGRESSION
  2. CLOBAZAM [Concomitant]
     Active Substance: CLOBAZAM
  3. BENZODIAZEPINES [Concomitant]
     Active Substance: BENZODIAZEPINE
     Route: 048
  4. CARBAMAZEPINE. [Suspect]
     Active Substance: CARBAMAZEPINE

REACTIONS (3)
  - Seizure [Recovered/Resolved]
  - Potentiating drug interaction [Recovered/Resolved]
  - Inappropriate antidiuretic hormone secretion [Recovered/Resolved]
